FAERS Safety Report 6234628-3 (Version None)
Quarter: 2009Q2

REPORT INFORMATION
  Report Type: 
  Country: None (occurrence: None)
  Receive Date: 20090616
  Receipt Date: 20090616
  Transmission Date: 20091009
  Serious: Yes (Life-Threatening, Hospitalization)
  Sender: FDA-Public Use
  Company Number: None

PATIENT
  Age: 46 Year
  Sex: Female
  Weight: 102.0593 kg

DRUGS (1)
  1. ALDARA [Suspect]
     Indication: PRECANCEROUS SKIN LESION
     Dosage: 0.25G MON. WED. FRIDAY TOP
     Route: 061
     Dates: start: 20090508, end: 20090527

REACTIONS (8)
  - CONTUSION [None]
  - DIZZINESS [None]
  - EPISTAXIS [None]
  - HAEMORRHAGE [None]
  - IMMUNE SYSTEM DISORDER [None]
  - INFLUENZA LIKE ILLNESS [None]
  - PLATELET COUNT DECREASED [None]
  - RASH ERYTHEMATOUS [None]
